FAERS Safety Report 11312429 (Version 1)
Quarter: 2015Q3

REPORT INFORMATION
  Report Type: Spontaneous
  Country: US (occurrence: US)
  Receive Date: 20150727
  Receipt Date: 20150727
  Transmission Date: 20151125
  Serious: Yes (Hospitalization, Other)
  Sender: FDA-Public Use
  Company Number: US-009507513-1103USA02102

PATIENT
  Sex: Female
  Weight: 70.76 kg

DRUGS (4)
  1. ALENDRONATE SODIUM. [Suspect]
     Active Substance: ALENDRONATE SODIUM
     Indication: OSTEOPENIA
  2. FOSAMAX [Suspect]
     Active Substance: ALENDRONATE SODIUM
     Indication: OSTEOPENIA
     Dosage: 70 MG, UNK
     Route: 048
     Dates: start: 20010817, end: 200806
  3. ALENDRONATE SODIUM. [Suspect]
     Active Substance: ALENDRONATE SODIUM
     Indication: OSTEOPOROSIS
     Dosage: 70 MG, UNK
     Route: 048
     Dates: start: 20080603, end: 20080929
  4. FOSAMAX [Suspect]
     Active Substance: ALENDRONATE SODIUM
     Indication: OSTEOPOROSIS
     Dosage: 10 MG, UNK
     Route: 048
     Dates: start: 199605, end: 20010817

REACTIONS (107)
  - Hypercholesterolaemia [Not Recovered/Not Resolved]
  - Neuralgia [Unknown]
  - Eye infection [Unknown]
  - Acute sinusitis [Not Recovered/Not Resolved]
  - Nerve compression [Unknown]
  - Chest pain [Not Recovered/Not Resolved]
  - Myocardial ischaemia [Not Recovered/Not Resolved]
  - Colon adenoma [Unknown]
  - Radiculopathy [Unknown]
  - Spinal column stenosis [Unknown]
  - Fall [Unknown]
  - Neck pain [Unknown]
  - Abdominal pain [Unknown]
  - Coronary artery disease [Unknown]
  - Joint dislocation [Unknown]
  - Diverticulum [Not Recovered/Not Resolved]
  - Fracture nonunion [Not Recovered/Not Resolved]
  - Cataract [Unknown]
  - Bronchial hyperreactivity [Recovering/Resolving]
  - Cervical cord compression [Unknown]
  - Compression fracture [Unknown]
  - Adjustment disorder with depressed mood [Not Recovered/Not Resolved]
  - Skin abrasion [Unknown]
  - Arthralgia [Unknown]
  - Deafness bilateral [Unknown]
  - Temporomandibular joint syndrome [Unknown]
  - Dysphagia [Unknown]
  - Colon adenoma [Unknown]
  - Femur fracture [Unknown]
  - Low turnover osteopathy [Unknown]
  - Anxiety [Not Recovered/Not Resolved]
  - Arthralgia [Not Recovered/Not Resolved]
  - Temporomandibular joint syndrome [Not Recovered/Not Resolved]
  - Bundle branch block left [Not Recovered/Not Resolved]
  - Cerebrovascular disorder [Not Recovered/Not Resolved]
  - Macrocytosis [Unknown]
  - Ischaemia [Unknown]
  - Device failure [Unknown]
  - Poor quality sleep [Unknown]
  - Pain in jaw [Unknown]
  - Intervertebral disc protrusion [Unknown]
  - Neck pain [Unknown]
  - Haemorrhoids [Unknown]
  - Tooth disorder [Unknown]
  - Irritable bowel syndrome [Unknown]
  - Hiatus hernia [Not Recovered/Not Resolved]
  - Orthostatic hypotension [Not Recovered/Not Resolved]
  - Carpal tunnel syndrome [Not Recovered/Not Resolved]
  - Ataxia [Unknown]
  - Fall [Unknown]
  - Cerumen impaction [Unknown]
  - Osteoarthritis [Recovering/Resolving]
  - Back pain [Unknown]
  - Constipation [Unknown]
  - Acquired oesophageal web [Unknown]
  - Hernia [Unknown]
  - Chest pain [Not Recovered/Not Resolved]
  - Kyphosis [Unknown]
  - Haemorrhoids [Unknown]
  - Oedema peripheral [Unknown]
  - Bruxism [Unknown]
  - Contusion [Unknown]
  - Haemorrhagic anaemia [Unknown]
  - Femur fracture [Recovering/Resolving]
  - Fractured sacrum [Recovered/Resolved]
  - Allergic respiratory symptom [Not Recovered/Not Resolved]
  - Musculoskeletal pain [Unknown]
  - Vertigo positional [Not Recovered/Not Resolved]
  - Gliosis [Unknown]
  - Chest pain [Unknown]
  - Spinal osteoarthritis [Unknown]
  - Arthropathy [Unknown]
  - Bile duct stone [Unknown]
  - Diarrhoea [Unknown]
  - Constipation [Unknown]
  - Hyperlipidaemia [Not Recovered/Not Resolved]
  - Spinal disorder [Not Recovered/Not Resolved]
  - Bronchitis [Not Recovered/Not Resolved]
  - Peptic ulcer [Unknown]
  - Otitis media [Unknown]
  - Tinnitus [Not Recovered/Not Resolved]
  - Polydipsia [Recovered/Resolved]
  - Compression fracture [Not Recovered/Not Resolved]
  - Pain [Not Recovered/Not Resolved]
  - Dental caries [Unknown]
  - Carotid artery stenosis [Unknown]
  - Abdominal pain upper [Unknown]
  - Colon adenoma [Unknown]
  - Osteoarthritis [Unknown]
  - Fall [Recovered/Resolved]
  - Laceration [Unknown]
  - Radius fracture [Recovering/Resolving]
  - Raynaud^s phenomenon [Not Recovered/Not Resolved]
  - Cataract [Unknown]
  - Fall [Unknown]
  - Hypertension [Not Recovered/Not Resolved]
  - Stress [Not Recovered/Not Resolved]
  - Intervertebral disc degeneration [Not Recovered/Not Resolved]
  - Glucose tolerance impaired [Unknown]
  - Renal cyst [Unknown]
  - Haemorrhagic anaemia [Unknown]
  - Confusional state [Recovering/Resolving]
  - Tooth fracture [Unknown]
  - Pain in extremity [Unknown]
  - Abdominal pain [Unknown]
  - Gastritis [Unknown]
  - Pubis fracture [Recovered/Resolved]

NARRATIVE: CASE EVENT DATE: 19960520
